FAERS Safety Report 10020781 (Version 1)
Quarter: 2014Q1

REPORT INFORMATION
  Report Type: Spontaneous
  Country: CA (occurrence: CA)
  Receive Date: 20140319
  Receipt Date: 20140319
  Transmission Date: 20141002
  Serious: Yes (Other)
  Sender: FDA-Public Use
  Company Number: CA-AMGEN-CANSP2014018622

PATIENT
  Age: 54 Year
  Sex: Female

DRUGS (3)
  1. ENBREL [Suspect]
     Indication: RHEUMATOID ARTHRITIS
     Dosage: 50 MG, UNK
     Route: 065
     Dates: start: 20140214, end: 20140311
  2. CODEINE [Concomitant]
     Dosage: UNK
  3. CORTISONE [Concomitant]
     Dosage: UNK

REACTIONS (2)
  - Arthritis [Recovered/Resolved]
  - Inflammation [Recovered/Resolved]
